FAERS Safety Report 9253362 (Version 1)
Quarter: 2013Q2

REPORT INFORMATION
  Report Type: Spontaneous
  Country: US (occurrence: US)
  Receive Date: 20130425
  Receipt Date: 20130425
  Transmission Date: 20140414
  Serious: No
  Sender: FDA-Public Use
  Company Number: US-009507513-1304USA007957

PATIENT
  Age: 52 Year
  Sex: Female

DRUGS (4)
  1. AZASITE [Suspect]
     Indication: INTRAOCULAR LENS IMPLANT
     Dosage: 2 GTT, BID
     Route: 047
     Dates: start: 20130411, end: 20130413
  2. AZASITE [Suspect]
     Dosage: 2 GTT, QD
     Route: 047
     Dates: start: 20130414
  3. RESTASIS [Concomitant]
  4. TIROSINT [Concomitant]

REACTIONS (3)
  - Vision blurred [Recovered/Resolved]
  - Incorrect drug administration duration [Unknown]
  - Off label use [Unknown]
